FAERS Safety Report 10657639 (Version 2)
Quarter: 2014Q4

REPORT INFORMATION
  Report Type: Spontaneous
  Country: JP (occurrence: JP)
  Receive Date: 20141217
  Receipt Date: 20141223
  Transmission Date: 20150529
  Serious: No
  Sender: FDA-Public Use
  Company Number: JP-ASTRAZENECA-2014SE95478

PATIENT
  Age: 14342 Day
  Sex: Female
  Weight: 70 kg

DRUGS (15)
  1. BAKUMONDOTO [Concomitant]
     Active Substance: HERBALS
     Route: 048
     Dates: start: 20140404, end: 20140412
  2. MUCOSOLVAN [Concomitant]
     Active Substance: AMBROXOL\CLENBUTEROL
     Route: 048
     Dates: start: 20140404, end: 20140412
  3. HOKUNALIN:TAPE [Concomitant]
     Active Substance: TULOBUTEROL
     Route: 062
     Dates: start: 20141122
  4. PULMICORT RESPULES [Suspect]
     Active Substance: BUDESONIDE
     Indication: ASTHMA
     Route: 055
     Dates: start: 20140404, end: 20140405
  5. MEPTIN [Concomitant]
     Active Substance: PROCATEROL HYDROCHLORIDE
     Indication: ASTHMA
     Route: 055
     Dates: start: 20141209, end: 20141209
  6. MEPTIN [Concomitant]
     Active Substance: PROCATEROL HYDROCHLORIDE
     Indication: ASTHMA
     Route: 055
     Dates: start: 20140404, end: 20140412
  7. MUCOSOLVAN [Concomitant]
     Active Substance: AMBROXOL\CLENBUTEROL
     Route: 048
     Dates: start: 20141122
  8. INTAL [Concomitant]
     Active Substance: CROMOLYN SODIUM
     Indication: ASTHMA
     Route: 055
     Dates: start: 20141122
  9. ADOAIR [Concomitant]
     Active Substance: FLUTICASONE PROPIONATE\SALMETEROL XINAFOATE
     Indication: ASTHMA
     Route: 055
     Dates: start: 20141201
  10. PULMICORT RESPULES [Suspect]
     Active Substance: BUDESONIDE
     Indication: ASTHMA
     Route: 055
     Dates: start: 20140404, end: 20140404
  11. PULMICORT RESPULES [Suspect]
     Active Substance: BUDESONIDE
     Indication: ASTHMA
     Route: 055
     Dates: start: 20141209, end: 20141209
  12. MEPTIN [Concomitant]
     Active Substance: PROCATEROL HYDROCHLORIDE
     Indication: ASTHMA
     Route: 055
     Dates: start: 20140405, end: 20140405
  13. IPD [Concomitant]
     Active Substance: SUPLATAST TOSILATE
     Indication: ASTHMA
     Route: 048
     Dates: start: 20141201
  14. MEPTIN [Concomitant]
     Active Substance: PROCATEROL HYDROCHLORIDE
     Indication: ASTHMA
     Route: 055
     Dates: start: 20140404, end: 20140404
  15. BAKUMONDOTO [Concomitant]
     Active Substance: HERBALS
     Route: 048
     Dates: start: 20141201

REACTIONS (4)
  - Blood pressure decreased [Recovering/Resolving]
  - Chest discomfort [Unknown]
  - Visual impairment [Unknown]
  - Dysstasia [Unknown]

NARRATIVE: CASE EVENT DATE: 20140404
